FAERS Safety Report 4702446-0 (Version None)
Quarter: 2005Q2

REPORT INFORMATION
  Report Type: 
  Country: None (occurrence: None)
  Receive Date: 20050629
  Receipt Date: 20050613
  Transmission Date: 20051028
  Serious: Yes (Hospitalization, Other)
  Sender: FDA-Public Use
  Company Number: PHRM2005FR01836

PATIENT
  Age: 42 Year
  Sex: Male
  Weight: 70 kg

DRUGS (6)
  1. LIORESAL [Suspect]
     Indication: FRIEDREICH'S ATAXIA
     Dosage: 150 MG
     Route: 048
     Dates: start: 20050507, end: 20050507
  2. LIORESAL [Suspect]
     Dosage: 10 MG, 6QD
     Route: 048
  3. TRAMADOL HCL [Concomitant]
     Route: 048
  4. SPASFON [Concomitant]
     Route: 048
  5. MICROLAX [Concomitant]
     Route: 054
  6. LOVENOX [Concomitant]

REACTIONS (7)
  - AREFLEXIA [None]
  - DRUG DISPENSING ERROR [None]
  - DRY MOUTH [None]
  - ENURESIS [None]
  - MEDICATION ERROR [None]
  - PSYCHOMOTOR SKILLS IMPAIRED [None]
  - SOMNOLENCE [None]
